FAERS Safety Report 6084177-0 (Version None)
Quarter: 2009Q1

REPORT INFORMATION
  Report Type: 
  Country: None (occurrence: None)
  Receive Date: 20090217
  Receipt Date: 20090211
  Transmission Date: 20090719
  Serious: Yes (Other)
  Sender: FDA-Public Use
  Company Number: 2009SP003139

PATIENT
  Sex: Female

DRUGS (1)
  1. PEGETRON (PEGINTEREFERON ALFA-2B W/RIBAVIRIN) (PEGYLATED INTERFERON AL [Suspect]
     Indication: DRUG USE FOR UNKNOWN INDICATION
     Route: 059

REACTIONS (2)
  - GLAUCOMA [None]
  - MYODESOPSIA [None]
